FAERS Safety Report 4932117-7 (Version None)
Quarter: 2006Q1

REPORT INFORMATION
  Report Type: 
  Country: None (occurrence: None)
  Receive Date: 20060227
  Receipt Date: 20050930
  Transmission Date: 20060701
  Serious: Yes (Hospitalization)
  Sender: FDA-Public Use
  Company Number: 6017553

PATIENT
  Sex: Female

DRUGS (18)
  1. BISOPROLOL FUMARATE [Suspect]
     Dosage: 10 MG (10 MG, 1 IN 1 D) ORAL
     Route: 048
  2. BUMETANIDE [Suspect]
     Dosage: 1,5 MG (1,5 MG, 1 IN 1 D)
  3. RAMIPRIL [Suspect]
     Dosage: 10 MG (10 MG, 1 IN 1 D)
  4. DICLOFENAC SODIUM [Suspect]
     Dosage: 100 MG (100 MG, 1 IN 1 D)
  5. FLOXAPEN (FLUCLOXACILLIN SODIUM) [Suspect]
     Dosage: SEE IMAGE
     Dates: start: 20050723, end: 20050729
  6. FLOXAPEN (FLUCLOXACILLIN SODIUM) [Suspect]
     Dosage: SEE IMAGE
     Dates: start: 20050722
  7. FLOXAPEN (FLUCLOXACILLIN SODIUM) [Suspect]
     Dosage: SEE IMAGE
     Dates: start: 20050730
  8. FLOXAPEN (FLUCLOXACILLIN SODIUM) [Suspect]
     Dosage: SEE IMAGE
     Dates: start: 20050730
  9. FUCIDINE CAP [Suspect]
     Dosage: 1500 MG (1500 MG, 1 IN 1 D) ORAL
     Route: 048
     Dates: start: 20050723
  10. LANOXIN [Suspect]
     Dosage: 250 MCG (250 MCG, 1 IN 1 D)
  11. WARFARIN SODIUM [Suspect]
     Dosage: 5 MG (5 MG, 1 IN 1 D)
  12. CARDURA XL [Concomitant]
  13. LEVOTHYROXINE SODIUM [Concomitant]
  14. PANTOPRAZOLE SODIUM [Concomitant]
  15. PRAVASTATIN SODIUM [Concomitant]
  16. MOTILIUM [Concomitant]
  17. ZOFRAN [Concomitant]
  18. PROCHLORPERAZINE [Concomitant]

REACTIONS (6)
  - DIALYSIS [None]
  - DRUG INTERACTION [None]
  - INTERNATIONAL NORMALISED RATIO INCREASED [None]
  - RENAL IMPAIRMENT [None]
  - RENAL TUBULAR NECROSIS [None]
  - THERAPEUTIC AGENT TOXICITY [None]
